FAERS Safety Report 7875826-2 (Version None)
Quarter: 2011Q4

REPORT INFORMATION
  Report Type: 
  Country: None (occurrence: None)
  Receive Date: 20111031
  Receipt Date: 20111019
  Transmission Date: 20120403
  Serious: Yes (Other)
  Sender: FDA-Public Use
  Company Number: PHFR2011GB06080

PATIENT
  Sex: Female
  Weight: 70 kg

DRUGS (6)
  1. PROCHLORPERAZINE MALEATE [Concomitant]
     Indication: VOMITING
     Dosage: 3 MG, TID
     Route: 048
  2. PILOGEL [Concomitant]
  3. E45 CREAM [Concomitant]
     Dosage: UNK
     Route: 061
  4. CLOZARIL [Suspect]
     Indication: SCHIZOPHRENIA
     Dosage: 100 MG, QD
     Route: 048
     Dates: start: 20020524
  5. RANITIDINE [Concomitant]
     Dosage: 150 MG, BID
     Route: 048
  6. VALPROIC ACID [Concomitant]
     Indication: PROPHYLAXIS
     Dosage: 300 MG, BID
     Route: 048

REACTIONS (1)
  - OSTEOARTHRITIS [None]
